FAERS Safety Report 20278211 (Version 4)
Quarter: 2022Q2

REPORT INFORMATION
  Report Type: Report from Study
  Country: US (occurrence: US)
  Receive Date: 20220103
  Receipt Date: 20220406
  Transmission Date: 20220721
  Serious: Yes (Hospitalization)
  Sender: FDA-Public Use
  Company Number: US-ABBVIE-21K-163-4218226-00

PATIENT
  Age: 78 Year
  Sex: Female
  Weight: 92.616 kg

DRUGS (15)
  1. RINVOQ [Suspect]
     Active Substance: UPADACITINIB
     Indication: Rheumatoid arthritis
     Route: 048
     Dates: start: 2019, end: 20211115
  2. RINVOQ [Suspect]
     Active Substance: UPADACITINIB
     Route: 048
     Dates: start: 20211206
  3. PFIZER-BIONTECH COVID-19 VACCINE [Concomitant]
     Active Substance: TOZINAMERAN
     Indication: COVID-19 immunisation
     Route: 030
  4. ALPRAZOLAM [Concomitant]
     Active Substance: ALPRAZOLAM
     Indication: Product used for unknown indication
  5. CITALOPRAM [Concomitant]
     Active Substance: CITALOPRAM HYDROBROMIDE
     Indication: Product used for unknown indication
  6. FEXOFENADINE [Concomitant]
     Active Substance: FEXOFENADINE HYDROCHLORIDE
     Indication: Product used for unknown indication
  7. MIRTAZAPINE [Concomitant]
     Active Substance: MIRTAZAPINE
     Indication: Product used for unknown indication
  8. VITAMIN E [Concomitant]
     Active Substance: .ALPHA.-TOCOPHEROL
     Indication: Supplementation therapy
  9. ZINC CITRATE [Concomitant]
     Active Substance: ZINC CITRATE
     Indication: Product used for unknown indication
  10. RESTASIS [Concomitant]
     Active Substance: CYCLOSPORINE
     Indication: Product used for unknown indication
  11. DIETARY SUPPLEMENT\HERBALS\MILK THISTLE [Concomitant]
     Active Substance: DIETARY SUPPLEMENT\HERBALS\MILK THISTLE
     Indication: Product used for unknown indication
  12. XANAX [Concomitant]
     Active Substance: ALPRAZOLAM
     Indication: Anxiety
  13. ALLEGRA [FEXOFENADINE HYDROCHLORIDE] [Concomitant]
     Indication: Allergic sinusitis
  14. CHOLECALCIFEROL [Concomitant]
     Active Substance: CHOLECALCIFEROL
     Indication: Supplementation therapy
  15. CALCIUM [Concomitant]
     Active Substance: CALCIUM
     Indication: Supplementation therapy

REACTIONS (10)
  - Hip fracture [Recovering/Resolving]
  - Fall [Recovered/Resolved]
  - Gait disturbance [Not Recovered/Not Resolved]
  - COVID-19 [Recovered/Resolved]
  - Neuropathy peripheral [Not Recovered/Not Resolved]
  - Joint swelling [Not Recovered/Not Resolved]
  - Alopecia [Not Recovered/Not Resolved]
  - Hypotension [Recovered/Resolved]
  - Fatigue [Not Recovered/Not Resolved]
  - Peripheral swelling [Unknown]

NARRATIVE: CASE EVENT DATE: 20201201
